FAERS Safety Report 14698624 (Version 1)
Quarter: 2018Q1

REPORT INFORMATION
  Report Type: Spontaneous
  Country: GB (occurrence: GB)
  Receive Date: 20180330
  Receipt Date: 20180330
  Transmission Date: 20180509
  Serious: Yes (Other)
  Sender: FDA-Public Use
  Company Number: PHHY2018GB047872

PATIENT
  Sex: Male

DRUGS (7)
  1. INSULIN [Suspect]
     Active Substance: INSULIN NOS
     Indication: FOETAL EXPOSURE DURING PREGNANCY
     Dosage: MATERNAL DOSE: UNKNOWN
     Route: 064
  2. FOLIC ACID. [Suspect]
     Active Substance: FOLIC ACID
     Indication: FOETAL EXPOSURE DURING PREGNANCY
     Dosage: MATERNAL DOSE: UNKNOWN
     Route: 064
  3. HEPARIN [Suspect]
     Active Substance: HEPARIN SODIUM
     Indication: FOETAL EXPOSURE DURING PREGNANCY
     Dosage: MATERNAL DOSE: UNKNOWN
     Route: 064
  4. LABETALOL [Suspect]
     Active Substance: LABETALOL\LABETALOL HYDROCHLORIDE
     Indication: FOETAL EXPOSURE DURING PREGNANCY
     Dosage: MATERNAL DOSE: UNKNOWN
     Route: 064
  5. LABETALOL [Suspect]
     Active Substance: LABETALOL\LABETALOL HYDROCHLORIDE
     Dosage: MATERNAL DOSE: UNKNOWN
     Route: 064
  6. NIFEDIPINE. [Suspect]
     Active Substance: NIFEDIPINE
     Indication: FOETAL EXPOSURE DURING PREGNANCY
     Dosage: MATERNAL DOSE: UNKNOWN
     Route: 064
  7. ACICLOVIR [Suspect]
     Active Substance: ACYCLOVIR
     Indication: FOETAL EXPOSURE DURING PREGNANCY
     Dosage: MATERNAL DOSE: UNKNOWN
     Route: 064

REACTIONS (3)
  - Low birth weight baby [Unknown]
  - Premature baby [Unknown]
  - Foetal exposure during pregnancy [Unknown]
